FAERS Safety Report 9255203 (Version 1)
Quarter: 2013Q2

REPORT INFORMATION
  Report Type: Report from Study
  Country: NL (occurrence: NL)
  Receive Date: 20130425
  Receipt Date: 20130425
  Transmission Date: 20140414
  Serious: Yes (Other)
  Sender: FDA-Public Use
  Company Number: NL-US-EMD SERONO, INC.-7199157

PATIENT
  Age: 56 Year
  Sex: Male

DRUGS (13)
  1. REBIF [Suspect]
     Indication: MULTIPLE SCLEROSIS
     Route: 058
     Dates: start: 20130306
  2. REBIF [Suspect]
     Route: 058
     Dates: end: 20130328
  3. FORMOTEROL [Concomitant]
     Indication: ASTHMA
  4. FORMOTEROL [Concomitant]
     Indication: CHRONIC OBSTRUCTIVE PULMONARY DISEASE
  5. GABAPENTINE [Concomitant]
     Indication: NEURALGIA
     Route: 048
  6. GLIMEPIRIDE [Concomitant]
     Indication: DIABETES MELLITUS
     Route: 048
  7. METFORMINE [Concomitant]
     Indication: DIABETES MELLITUS
     Route: 048
  8. OMEPRAZOL [Concomitant]
     Indication: ABDOMINAL DISCOMFORT
     Route: 048
  9. SERTRALINE [Concomitant]
     Indication: DEPRESSION
     Route: 048
  10. TAMSULOSINE [Concomitant]
     Indication: PROSTATOMEGALY
     Route: 048
  11. TIOTROPIUM [Concomitant]
     Indication: ASTHMA
  12. TIOTROPIUM [Concomitant]
     Indication: CHRONIC OBSTRUCTIVE PULMONARY DISEASE
  13. VALSARTAN [Concomitant]
     Indication: HYPERTENSION
     Route: 048

REACTIONS (5)
  - Depression suicidal [Unknown]
  - Arrhythmia [Unknown]
  - Burning sensation [Unknown]
  - Vomiting [Unknown]
  - Influenza like illness [Unknown]
